FAERS Safety Report 18367695 (Version 3)
Quarter: 2020Q4

REPORT INFORMATION
  Report Type: Spontaneous
  Country: US (occurrence: US)
  Receive Date: 20201009
  Receipt Date: 20201222
  Transmission Date: 20210114
  Serious: No
  Sender: FDA-Public Use
  Company Number: US-BAUSCH-BL-2020-028584

PATIENT
  Age: 75 Year
  Sex: Female
  Weight: 45.4 kg

DRUGS (1)
  1. PLENVU [Suspect]
     Active Substance: ASCORBIC ACID\POLYETHYLENE GLYCOL 3350\POTASSIUM CHLORIDE\SODIUM ASCORBATE\SODIUM CHLORIDE\SODIUM SULFATE
     Indication: BOWEL PREPARATION
     Dosage: FIRST DOSE AT 6 PM AND SECOND DOSE AT 9 PM; NINTH COLONOSCOPY
     Route: 048
     Dates: start: 20200929, end: 20200929

REACTIONS (4)
  - Product taste abnormal [Unknown]
  - Liquid product physical issue [Unknown]
  - Vomiting [Recovered/Resolved]
  - Patient dissatisfaction with treatment [Unknown]

NARRATIVE: CASE EVENT DATE: 202009
